FAERS Safety Report 11158178 (Version 1)
Quarter: 2015Q2

REPORT INFORMATION
  Report Type: Spontaneous
  Country: IE (occurrence: IE)
  Receive Date: 20150603
  Receipt Date: 20150603
  Transmission Date: 20150821
  Serious: Yes (Other)
  Sender: FDA-Public Use
  Company Number: IE-MYLANLABS-2015M1017440

PATIENT

DRUGS (1)
  1. WARFARIN [Suspect]
     Active Substance: WARFARIN
     Indication: PERIPHERAL VASCULAR DISORDER
     Dosage: 2MG DAILY
     Route: 065

REACTIONS (2)
  - Gastrointestinal necrosis [Recovered/Resolved]
  - Intestinal ischaemia [Recovered/Resolved]
